FAERS Safety Report 5698779-4 (Version None)
Quarter: 2008Q2

REPORT INFORMATION
  Report Type: 
  Country: None (occurrence: None)
  Receive Date: 20080404
  Receipt Date: 20080320
  Transmission Date: 20081010
  Serious: Yes (Disabling)
  Sender: FDA-Public Use
  Company Number: 08-000521

PATIENT
  Age: 78 Year
  Sex: Female

DRUGS (5)
  1. DURICEF [Suspect]
     Indication: INFLUENZA
     Dosage: 500 MG, BID, ORAL
     Route: 048
     Dates: start: 20070525, end: 20070501
  2. INHIBACE /00498401/ (CAPTOPRIL) [Concomitant]
  3. HYDROXYZINE [Concomitant]
  4. CONCOR /00802602/ (BISOPROLOL FUMARATE) [Concomitant]
  5. HYDROCHLOROTHIAZIDE [Concomitant]

REACTIONS (3)
  - ANOSMIA [None]
  - ATROPHY [None]
  - OLFACTORY NERVE DISORDER [None]
